FAERS Safety Report 9509396 (Version 1)
Quarter: 2013Q3

REPORT INFORMATION
  Report Type: Spontaneous
  Country: US (occurrence: US)
  Receive Date: 20130909
  Receipt Date: 20130909
  Transmission Date: 20140515
  Serious: Yes (Other)
  Sender: FDA-Public Use
  Company Number: US-PFIZER INC-2013258623

PATIENT
  Age: 68 Year
  Sex: Male
  Weight: 115.65 kg

DRUGS (12)
  1. LYRICA [Suspect]
     Indication: FIBROMYALGIA
     Dosage: 150 MG, 2X/DAY
     Route: 048
     Dates: start: 20130801, end: 2013
  2. L-ARGININE [Concomitant]
     Dosage: 1000 MG, 3X/DAY
  3. METFORMIN [Concomitant]
     Indication: DIABETES MELLITUS
     Dosage: 500 MG, 2X/DAY
  4. METOPROLOL [Concomitant]
     Indication: CARDIAC DISORDER
     Dosage: 100 MG, 2X/DAY
  5. WARFARIN [Concomitant]
     Dosage: 5 MG, 1X/DAY
  6. ATORVASTATIN [Concomitant]
     Dosage: 20 MG, 1X/DAY
  7. CARTIA [Concomitant]
     Dosage: 240 MG, 1X/DAY
  8. VITAMIN SUPER B COMPLEX [Concomitant]
     Dosage: UNK, 1X/DAY
  9. VITAMIN B1 [Concomitant]
     Dosage: 100 MG, 1X/DAY
  10. VITAMIN D3 [Concomitant]
     Dosage: UNK
  11. CHROMIUM [Concomitant]
     Dosage: 500 MG, 1X/DAY
  12. ALPHA-LIPOIC ACID [Concomitant]
     Dosage: 600 MG, 3X/DAY

REACTIONS (2)
  - Cardiogenic shock [Unknown]
  - Dyspnoea [Unknown]
